FAERS Safety Report 20676328 (Version 1)
Quarter: 2022Q2

REPORT INFORMATION
  Report Type: Spontaneous
  Country: CN (occurrence: CN)
  Receive Date: 20220405
  Receipt Date: 20220405
  Transmission Date: 20220721
  Serious: Yes (Other)
  Sender: FDA-Public Use
  Company Number: CN-Fresenius Kabi-FK202203976

PATIENT
  Age: 32 Year
  Sex: Male

DRUGS (3)
  1. METHYLPREDNISOLONE [Suspect]
     Active Substance: METHYLPREDNISOLONE
     Indication: Stevens-Johnson syndrome
     Dosage: GRADUALLY REDUCED/TAPERED TO 10 MG/DAY
     Route: 042
     Dates: start: 202008, end: 202009
  2. PREDNISONE [Suspect]
     Active Substance: PREDNISONE
     Indication: Stevens-Johnson syndrome
     Dosage: GRADUALLY REDUCED/TAPERED TO 10 MG/DAY
     Route: 065
     Dates: start: 202008, end: 202009
  3. ADALIMUMAB [Suspect]
     Active Substance: ADALIMUMAB
     Indication: Stevens-Johnson syndrome
     Route: 065

REACTIONS (2)
  - Rebound effect [Unknown]
  - Porokeratosis [Unknown]
